FAERS Safety Report 23960454 (Version 2)
Quarter: 2024Q3

REPORT INFORMATION
  Report Type: Spontaneous
  Country: JP (occurrence: JP)
  Receive Date: 20240611
  Receipt Date: 20240720
  Transmission Date: 20241017
  Serious: Yes (Disabling)
  Sender: REGENERON
  Company Number: JP-BAYER-2024A082509

PATIENT
  Age: 6 Decade
  Sex: Male

DRUGS (2)
  1. EYLEA [Suspect]
     Active Substance: AFLIBERCEPT
     Indication: Retinal vein occlusion
     Dosage: 2 MG, ONCE, ADMINISTERED EYE UNKNOWN; SOLUTION FOR INJECTION IN PRE-FILLED SYRINGE; 40 MG/ML
     Route: 031
     Dates: start: 20240510
  2. EYLEA [Suspect]
     Active Substance: AFLIBERCEPT
     Indication: Macular oedema

REACTIONS (2)
  - Vascular occlusion [Unknown]
  - Blindness [Unknown]

NARRATIVE: CASE EVENT DATE: 20240604
